FAERS Safety Report 6919990-8 (Version None)
Quarter: 2010Q3

REPORT INFORMATION
  Report Type: 
  Country: None (occurrence: None)
  Receive Date: 20100811
  Receipt Date: 20100803
  Transmission Date: 20110219
  Serious: Yes (Hospitalization, Other)
  Sender: FDA-Public Use
  Company Number: DE-ABBOTT-10P-062-0625559-00

PATIENT
  Sex: Female

DRUGS (12)
  1. HUMIRA [Suspect]
     Indication: RHEUMATOID ARTHRITIS
     Route: 058
     Dates: start: 20070901, end: 20100101
  2. GLUCOSTEROIDS [Concomitant]
     Indication: RHEUMATOID ARTHRITIS
  3. LEFLUNOMIDE [Concomitant]
     Indication: RHEUMATOID ARTHRITIS
     Dosage: 10-20MG
     Dates: start: 20040401
  4. PANTOZOL [Concomitant]
     Indication: PROPHYLAXIS AGAINST GASTROINTESTINAL ULCER
     Dosage: 20 MG DAILY
  5. METOPROLOL COMP. [Concomitant]
     Indication: HYPERTENSION
     Dosage: 12.5 MG DAILY
  6. PREDNISOLONE [Concomitant]
     Indication: RHEUMATOID ARTHRITIS
     Dosage: 4 MG DAILY
  7. SIMVASTATIN [Concomitant]
     Indication: HYPERCHOLESTEROLAEMIA
     Dosage: 20 MG DAILY
  8. TOLTERODINE [Concomitant]
     Indication: PRODUCT USED FOR UNKNOWN INDICATION
     Dosage: 2MG DAILY
  9. METAMIZOL [Concomitant]
     Indication: PAIN
     Route: 048
  10. DIGIMERCK MINOR [Concomitant]
     Indication: CARDIAC FAILURE
     Dosage: 1 TABLET DAILY
  11. EXFORGE [Concomitant]
     Indication: HYPERTENSION
     Dosage: 1-5/160MG TABLET DAILY
  12. SULFASALAZINE [Concomitant]
     Indication: RHEUMATOID ARTHRITIS

REACTIONS (12)
  - ATRIOVENTRICULAR BLOCK FIRST DEGREE [None]
  - CHEST DISCOMFORT [None]
  - COLONIC POLYP [None]
  - DYSPNOEA [None]
  - GASTRITIS [None]
  - GASTROINTESTINAL FUNGAL INFECTION [None]
  - GENERAL PHYSICAL HEALTH DETERIORATION [None]
  - HEPATIC STEATOSIS [None]
  - MITRAL VALVE INCOMPETENCE [None]
  - PYREXIA [None]
  - RHEUMATOID ARTHRITIS [None]
  - RHEUMATOID LUNG [None]
